FAERS Safety Report 4622571-2 (Version None)
Quarter: 2005Q1

REPORT INFORMATION
  Report Type: 
  Country: None (occurrence: None)
  Receive Date: 20050325
  Receipt Date: 20050325
  Transmission Date: 20050727
  Serious: Yes (Hospitalization)
  Sender: FDA-Public Use
  Company Number: None

PATIENT
  Sex: Male

DRUGS (3)
  1. AMIODARONE HYDROCHLORIDE [Suspect]
     Indication: ATRIAL FIBRILLATION
     Dosage: 200 MG    3 TIMES DAILY   ORAL
     Route: 048
     Dates: start: 20050310, end: 20050324
  2. STATIN DRUG [Concomitant]
  3. FLOMAX [Concomitant]

REACTIONS (4)
  - ABDOMINAL DISTENSION [None]
  - DYSPNOEA [None]
  - PULMONARY CONGESTION [None]
  - SPEECH DISORDER [None]
